FAERS Safety Report 4387340-X (Version None)
Quarter: 2004Q2

REPORT INFORMATION
  Report Type: 
  Country: None (occurrence: None)
  Receive Date: 20040630
  Receipt Date: 20040408
  Transmission Date: 20050107
  Serious: No
  Sender: FDA-Public Use
  Company Number: US-GLAXOSMITHKLINE-A0506863A

PATIENT
  Age: 75 Year
  Sex: Female
  Weight: 95.9 kg

DRUGS (11)
  1. ADVAIR HFA [Suspect]
     Indication: EMPHYSEMA
     Route: 055
     Dates: start: 20031101
  2. ALBUTEROL [Concomitant]
     Route: 055
  3. ATROVENT [Concomitant]
     Dosage: 2PUFF FOUR TIMES PER DAY
     Route: 055
  4. LEVOXYL [Concomitant]
     Dosage: .05MG PER DAY
  5. AMIODARONE [Concomitant]
  6. FUROSEMIDE [Concomitant]
     Dosage: 40MG PER DAY
  7. PROTONIX [Concomitant]
  8. OXYBUTYNIN [Concomitant]
     Dosage: 5MG THREE TIMES PER DAY
  9. LIPITOR [Concomitant]
     Dosage: 10MG PER DAY
  10. K-DUR 10 [Concomitant]
     Dosage: 20MG PER DAY
  11. ALBUTEROL [Concomitant]
     Dosage: 2PUFF AS REQUIRED
     Route: 055

REACTIONS (4)
  - ORAL CANDIDIASIS [None]
  - ORAL SOFT TISSUE DISORDER [None]
  - PALLOR [None]
  - TONGUE DISORDER [None]
